FAERS Safety Report 7814001-4 (Version None)
Quarter: 2011Q4

REPORT INFORMATION
  Report Type: 
  Country: None (occurrence: None)
  Receive Date: 20111012
  Receipt Date: 20110921
  Transmission Date: 20120403
  Serious: Yes (Other)
  Sender: FDA-Public Use
  Company Number: AUR-APL-2011-04681

PATIENT
  Age: 64 Year
  Sex: Female
  Weight: 57 kg

DRUGS (3)
  1. VENLAFAXINE [Suspect]
     Indication: ANXIETY
     Dosage: (37.5 MG), ORAL
     Route: 048
     Dates: start: 20110816
  2. VENLAFAXINE [Suspect]
     Indication: DEPRESSION
     Dates: end: 20110601
  3. EFFEXOR XR [Suspect]
     Indication: DEPRESSION
     Dosage: 37.5 MG (37.5 MG, 1 IN 1 D), ORAL
     Route: 048
     Dates: start: 20110601, end: 20110701

REACTIONS (7)
  - SEDATION [None]
  - FEELING ABNORMAL [None]
  - PRODUCT FORMULATION ISSUE [None]
  - DIZZINESS [None]
  - HEADACHE [None]
  - AKATHISIA [None]
  - WRONG TECHNIQUE IN DRUG USAGE PROCESS [None]
